FAERS Safety Report 24332625 (Version 1)
Quarter: 2024Q3

REPORT INFORMATION
  Report Type: Spontaneous
  Country: US (occurrence: None)
  Receive Date: 20240917
  Receipt Date: 20240917
  Transmission Date: 20241017
  Serious: Yes (Life-Threatening, Hospitalization)
  Sender: Public
  Company Number: None

PATIENT
  Age: 18 Year
  Sex: Male
  Weight: 74.5 kg

DRUGS (1)
  1. ASPARLAS [Suspect]
     Active Substance: CALASPARGASE PEGOL-MKNL
     Indication: T-cell type acute leukaemia
     Dosage: OTHER FREQUENCY : PER PROTOCOL;?
     Route: 042
     Dates: start: 20231219, end: 20240402

REACTIONS (9)
  - Cough [None]
  - Infusion related reaction [None]
  - Nausea [None]
  - Blindness [None]
  - Tachycardia [None]
  - Hypotension [None]
  - Hyperhidrosis [None]
  - Anaphylactic reaction [None]
  - Cardio-respiratory arrest [None]

NARRATIVE: CASE EVENT DATE: 20240402
